FAERS Safety Report 13149182 (Version 1)
Quarter: 2017Q1

REPORT INFORMATION
  Report Type: Spontaneous
  Country: US (occurrence: US)
  Receive Date: 20170125
  Receipt Date: 20170125
  Transmission Date: 20170428
  Serious: Yes (Hospitalization, Other)
  Sender: FDA-Public Use
  Company Number: US-OTSUKA-2016_009931

PATIENT
  Sex: Male

DRUGS (2)
  1. PLETAL [Suspect]
     Active Substance: CILOSTAZOL
     Dosage: UNK
     Route: 065
  2. PLETAL [Suspect]
     Active Substance: CILOSTAZOL
     Indication: CARDIOVASCULAR DISORDER
     Dosage: 100 MG, BID (AT LEAST 15 YEARS AGO)
     Route: 048
     Dates: end: 2008

REACTIONS (2)
  - Off label use [Unknown]
  - Atrial fibrillation [Recovered/Resolved]

NARRATIVE: CASE EVENT DATE: 2000
